FAERS Safety Report 4989021-8 (Version None)
Quarter: 2006Q2

REPORT INFORMATION
  Report Type: 
  Country: None (occurrence: None)
  Receive Date: 20060425
  Receipt Date: 20060419
  Transmission Date: 20061013
  Serious: Yes (Life-Threatening)
  Sender: FDA-Public Use
  Company Number: 2006-141395-NL

PATIENT
  Age: 47 Year
  Sex: Male

DRUGS (10)
  1. ROCURONIUM BROMIDE [Suspect]
     Indication: ANAESTHESIA
     Dosage: 50 MG ONCE
     Route: 042
  2. SUCCINYLCHOLINE CHLORIDE [Concomitant]
  3. SODIUM CITRATE [Concomitant]
  4. RANITIDINE [Concomitant]
  5. PROPOFOL [Concomitant]
  6. REMIFENTANIL HYDROCHLORIDE [Concomitant]
  7. PHENYTOIN SODIUM [Concomitant]
  8. DEXAMETHASONE [Concomitant]
  9. PROMETHAZINE HCL [Concomitant]
  10. HYDROCORTISONE [Concomitant]

REACTIONS (7)
  - BRADYCARDIA [None]
  - BRONCHOSPASM [None]
  - CARDIAC ARREST [None]
  - GENERALISED ERYTHEMA [None]
  - HYPOTENSION [None]
  - OXYGEN SATURATION DECREASED [None]
  - PULSE ABSENT [None]
